FAERS Safety Report 14321181 (Version 1)
Quarter: 2017Q4

REPORT INFORMATION
  Report Type: Spontaneous
  Country: ES (occurrence: ES)
  Receive Date: 20171223
  Receipt Date: 20171223
  Transmission Date: 20180321
  Serious: Yes (Death)
  Sender: FDA-Public Use
  Company Number: ES-AUROBINDO-AUR-APL-2017-46626

PATIENT
  Age: 82 Year
  Sex: Female

DRUGS (2)
  1. METILPREDNISOLONA                  /00049601/ [Concomitant]
     Active Substance: METHYLPREDNISOLONE
     Indication: BRONCHITIS
     Route: 042
     Dates: start: 20170131, end: 20170202
  2. AMOXICILLIN+CLAVULANIC ACID [Suspect]
     Active Substance: AMOXICILLIN\CLAVULANIC ACID
     Indication: PNEUMONIA
     Route: 042
     Dates: start: 20170201, end: 20170202

REACTIONS (1)
  - Epiglottitis [Fatal]

NARRATIVE: CASE EVENT DATE: 20170202
